FAERS Safety Report 4731754-2 (Version None)
Quarter: 2005Q3

REPORT INFORMATION
  Report Type: 
  Country: None (occurrence: None)
  Receive Date: 20050725
  Receipt Date: 20040915
  Transmission Date: 20060218
  Serious: Yes (Disabling)
  Sender: FDA-Public Use
  Company Number: WAES 0306USA00789

PATIENT
  Age: 58 Year
  Sex: Female

DRUGS (10)
  1. VIOXX [Suspect]
     Dosage: 25 MG/DAILY/PO
     Route: 048
     Dates: start: 20010418, end: 20020520
  2. FOSAMAX [Concomitant]
  3. PAXIL [Concomitant]
  4. PREMARIN [Concomitant]
  5. PRILOSEC [Concomitant]
  6. TYLENOL (CAPLET) [Concomitant]
  7. ZYRTEC [Concomitant]
  8. CLONAZEPAM [Concomitant]
  9. HYDROCHLOROTHIAZIDE [Concomitant]
  10. VITAMINS (UNSPECIFIED) [Concomitant]

REACTIONS (20)
  - ABDOMINAL PAIN [None]
  - ACUTE SINUSITIS [None]
  - ADVERSE EVENT [None]
  - ARTHRALGIA [None]
  - CHEST PAIN [None]
  - CYSTITIS [None]
  - DIARRHOEA [None]
  - DRUG INEFFECTIVE [None]
  - DYSPNOEA [None]
  - DYSURIA [None]
  - FATIGUE [None]
  - GASTROOESOPHAGEAL REFLUX DISEASE [None]
  - LOWER EXTREMITY MASS [None]
  - MENOPAUSAL SYMPTOMS [None]
  - NAUSEA [None]
  - PAIN [None]
  - PAIN IN EXTREMITY [None]
  - PALPITATIONS [None]
  - PHARYNGITIS BACTERIAL [None]
  - URINARY TRACT INFECTION [None]
